FAERS Safety Report 10465006 (Version 1)
Quarter: 2014Q3

REPORT INFORMATION
  Report Type: Spontaneous
  Country: RU (occurrence: RU)
  Receive Date: 20140919
  Receipt Date: 20140919
  Transmission Date: 20150326
  Serious: Yes (Other)
  Sender: FDA-Public Use
  Company Number: RU-VIIV HEALTHCARE LIMITED-B1026633A

PATIENT

DRUGS (4)
  1. RHZE (RIFAMPICIN + ISONIAZID + PYRAZINAMIDE + ETHAMBUTOL) [Suspect]
     Active Substance: ETHAMBUTOL HYDROCHLORIDE\ISONIAZID\PYRAZINAMIDE\RIFAMYCIN
     Indication: PRODUCT USED FOR UNKNOWN INDICATION
     Route: 065
     Dates: start: 20140814
  2. KALETRA [Suspect]
     Active Substance: LOPINAVIR\RITONAVIR
     Indication: HIV INFECTION
     Route: 065
     Dates: start: 201408
  3. LAMIVUDINE-HIV [Suspect]
     Active Substance: LAMIVUDINE
     Indication: HIV INFECTION
     Route: 065
     Dates: start: 201408
  4. NIKAVIR [Suspect]
     Active Substance: PHOSPHAZIDE
     Indication: HIV INFECTION
     Route: 065
     Dates: start: 201408

REACTIONS (9)
  - Tuberculosis [Unknown]
  - Dysgeusia [Unknown]
  - Somnolence [Unknown]
  - Diarrhoea [Unknown]
  - Rash [Unknown]
  - Haemorrhoids [Not Recovered/Not Resolved]
  - Pyrexia [Unknown]
  - Dissociation [Unknown]
  - Syncope [Unknown]

NARRATIVE: CASE EVENT DATE: 20140816
